FAERS Safety Report 23680335 (Version 1)
Quarter: 2024Q1

REPORT INFORMATION
  Report Type: Spontaneous
  Country: IN (occurrence: IN)
  Receive Date: 20240328
  Receipt Date: 20240328
  Transmission Date: 20240410
  Serious: Yes (Other)
  Sender: FDA-Public Use
  Company Number: IN-002147023-NVSC2024IN061638

PATIENT
  Age: 50 Year
  Sex: Male

DRUGS (3)
  1. RANIBIZUMAB [Suspect]
     Active Substance: RANIBIZUMAB
     Indication: Diabetic retinal oedema
     Dosage: UNK
     Route: 065
     Dates: start: 20230531
  2. BROLUCIZUMAB [Suspect]
     Active Substance: BROLUCIZUMAB
     Indication: Diabetic retinal oedema
     Dosage: UNK
     Route: 065
  3. BROLUCIZUMAB [Suspect]
     Active Substance: BROLUCIZUMAB
     Dosage: UNK (SECOND INJECTION)
     Route: 065
     Dates: start: 20240223

REACTIONS (4)
  - Vitritis [Unknown]
  - Retinal vasculitis [Unknown]
  - Vitreous floaters [Unknown]
  - Diabetic retinal oedema [Unknown]

NARRATIVE: CASE EVENT DATE: 20240201
